FAERS Safety Report 9784572 (Version 2)
Quarter: 2014Q1

REPORT INFORMATION
  Report Type: Report from Study
  Country: US (occurrence: US)
  Receive Date: 20131226
  Receipt Date: 20140116
  Transmission Date: 20141002
  Serious: Yes (Hospitalization)
  Sender: FDA-Public Use
  Company Number: US-ACTELION-A-NJ2013-92649

PATIENT
  Age: 12 Year
  Sex: Female

DRUGS (3)
  1. TRACLEER [Suspect]
     Indication: HYPERTENSION
     Dosage: 62.5 MG, BID
     Route: 048
     Dates: start: 20131115
  2. AMLODIPINE [Concomitant]
  3. LOSARTAN [Concomitant]

REACTIONS (4)
  - Renal failure chronic [Recovering/Resolving]
  - Nephrogenic anaemia [Recovering/Resolving]
  - Hypertension [Recovering/Resolving]
  - Nephrectomy [Recovering/Resolving]
